FAERS Safety Report 5517126-1 (Version None)
Quarter: 2007Q4

REPORT INFORMATION
  Report Type: 
  Country: None (occurrence: None)
  Receive Date: 20071114
  Receipt Date: 20071108
  Transmission Date: 20080405
  Serious: Yes (Life-Threatening, Hospitalization)
  Sender: FDA-Public Use
  Company Number: B0486672A

PATIENT
  Age: 65 Year
  Sex: Female
  Weight: 39 kg

DRUGS (4)
  1. PAXIL [Suspect]
     Indication: BIPOLAR I DISORDER
     Dosage: 20MG PER DAY
     Route: 048
     Dates: end: 20070907
  2. SILECE [Concomitant]
     Route: 065
  3. SERENACE [Concomitant]
     Route: 065
  4. RHYTHMY [Concomitant]
     Route: 065

REACTIONS (13)
  - ALTERED STATE OF CONSCIOUSNESS [None]
  - BLOOD CREATINE PHOSPHOKINASE INCREASED [None]
  - COMA [None]
  - CONFUSIONAL STATE [None]
  - DELUSION [None]
  - HAEMATEMESIS [None]
  - HALLUCINATION, VISUAL [None]
  - HYPONATRAEMIA [None]
  - INAPPROPRIATE ANTIDIURETIC HORMONE SECRETION [None]
  - INSOMNIA [None]
  - LOSS OF CONSCIOUSNESS [None]
  - REFLUX OESOPHAGITIS [None]
  - URINE OSMOLARITY INCREASED [None]
